FAERS Safety Report 24843714 (Version 1)
Quarter: 2025Q1

REPORT INFORMATION
  Report Type: Spontaneous
  Country: CN (occurrence: CN)
  Receive Date: 20250115
  Receipt Date: 20250115
  Transmission Date: 20250409
  Serious: Yes (Other)
  Sender: BEIGENE
  Company Number: CN-BEIGENE-BGN-2025-000614

PATIENT

DRUGS (6)
  1. TISLELIZUMAB [Suspect]
     Active Substance: TISLELIZUMAB
     Indication: Neuroendocrine carcinoma of prostate
     Dosage: 200 MILLIGRAM, QD FOR 21 DAYS, ADMINISTERED EVERY THREE WEEKS
     Dates: start: 202205, end: 2022
  2. TISLELIZUMAB [Suspect]
     Active Substance: TISLELIZUMAB
     Dosage: 200 MILLIGRAM, QD FOR 21 DAYS, ADMINISTERED EVERY THREE WEEKS
     Dates: start: 202303
  3. TISLELIZUMAB [Suspect]
     Active Substance: TISLELIZUMAB
     Dosage: 200 MILLIGRAM, QD FOR 21 DAYS, ADMINISTERED EVERY THREE WEEKS
     Dates: start: 2023
  4. CATEQUENTINIB [Suspect]
     Active Substance: CATEQUENTINIB
     Indication: Neuroendocrine carcinoma of prostate
     Dosage: 8 MILLIGRAM, QD FOR 14 DAYS, ADMINISTERED EVERY THREE WEEKS
     Dates: start: 202205, end: 2022
  5. CATEQUENTINIB [Suspect]
     Active Substance: CATEQUENTINIB
     Dosage: 8 MILLIGRAM, QD FOR 14 DAYS, ADMINISTERED EVERY THREE WEEKS
     Dates: start: 202303
  6. CATEQUENTINIB [Suspect]
     Active Substance: CATEQUENTINIB
     Dosage: 8 MILLIGRAM, QD FOR 14 DAYS, ADMINISTERED EVERY THREE WEEKS
     Dates: start: 2023

REACTIONS (1)
  - Cerebrovascular accident [Recovered/Resolved]

NARRATIVE: CASE EVENT DATE: 20231101
